FAERS Safety Report 6122094-8 (Version None)
Quarter: 2009Q1

REPORT INFORMATION
  Report Type: 
  Country: None (occurrence: None)
  Receive Date: 20090316
  Receipt Date: 20090316
  Transmission Date: 20090719
  Serious: Yes (Other)
  Sender: FDA-Public Use
  Company Number: None

PATIENT
  Age: 79 Year
  Sex: Male
  Weight: 95.2554 kg

DRUGS (1)
  1. PREVIDENT 5000 1.1% SODIUM FLUORIDE COLGATE [Suspect]
     Indication: DENTAL DISORDER PROPHYLAXIS
     Dosage: SMALL LINE ON TOOTHBRUSH DAILY BEFORE BEDTI DENTAL
     Route: 004
     Dates: start: 20081128, end: 20090310

REACTIONS (4)
  - IMPLANT SITE PAIN [None]
  - MALAISE [None]
  - MUSCLE SPASMS [None]
  - PAIN IN EXTREMITY [None]
